FAERS Safety Report 4676962-4 (Version None)
Quarter: 2005Q2

REPORT INFORMATION
  Report Type: 
  Country: None (occurrence: None)
  Receive Date: 20050526
  Receipt Date: 20050518
  Transmission Date: 20051028
  Serious: Yes (Other)
  Sender: FDA-Public Use
  Company Number: USA-2005-0020311

PATIENT
  Age: 58 Year
  Sex: Female

DRUGS (6)
  1. MORPHINE SULFATE [Suspect]
     Dosage: 2 MG/HR, SEE TEXT, INTRAVENOUS; 1 MG/HR, SEE TEXT, INTRAVENOUS
     Route: 042
  2. OLANZAPINE (OLANZAPINE) [Concomitant]
  3. FAMOTIDINE [Concomitant]
  4. OCTREOTIDE ACETATE [Concomitant]
  5. MIRTAZAPINE [Concomitant]
  6. ESOMEPRAZOLE (ESOMEPRAZOLE) [Concomitant]

REACTIONS (5)
  - DELIRIUM [None]
  - HALLUCINATION, VISUAL [None]
  - MYOCLONUS [None]
  - NEUROTOXICITY [None]
  - RENAL FAILURE [None]
